FAERS Safety Report 4562937-2 (Version None)
Quarter: 2005Q1

REPORT INFORMATION
  Report Type: 
  Country: None (occurrence: None)
  Receive Date: 20050121
  Receipt Date: 20050106
  Transmission Date: 20050727
  Serious: Yes (Hospitalization)
  Sender: FDA-Public Use
  Company Number: 2004AP04970

PATIENT
  Age: 80 Year
  Sex: Female
  Weight: 60 kg

DRUGS (14)
  1. IRESSA [Suspect]
     Indication: CERVIX NEOPLASM
     Dosage: 500 MG DAILY PO
     Route: 048
     Dates: start: 20040702, end: 20040804
  2. IRESSA [Suspect]
     Indication: CERVIX NEOPLASM
     Dosage: 250 MG DAILY PO
     Route: 048
     Dates: start: 20040805, end: 20040917
  3. FRAXIPARINE [Concomitant]
  4. RABEPRAZOLE SODIUM [Concomitant]
  5. ALDACTACINE [Concomitant]
  6. VICTAN [Concomitant]
  7. SIPRALEXA [Concomitant]
  8. XANAX [Concomitant]
  9. GEOMYCINE [Concomitant]
  10. ARTIFICIAL TEARS [Concomitant]
  11. ISOBETADINE [Concomitant]
  12. DAKTOZIN [Concomitant]
  13. COMFEEL [Concomitant]
  14. TRANSTEC [Concomitant]

REACTIONS (10)
  - CONFUSIONAL STATE [None]
  - DRUG TOXICITY [None]
  - DYSURIA [None]
  - GENERAL PHYSICAL HEALTH DETERIORATION [None]
  - HAEMATEMESIS [None]
  - HIATUS HERNIA [None]
  - MUCOSAL INFLAMMATION [None]
  - OESOPHAGITIS [None]
  - STOMATITIS [None]
  - VAGINAL DISORDER [None]
